FAERS Safety Report 5164333-6 (Version None)
Quarter: 2006Q4

REPORT INFORMATION
  Report Type: 
  Country: None (occurrence: None)
  Receive Date: 20061127
  Receipt Date: 20061127
  Transmission Date: 20070319
  Serious: Yes (Hospitalization)
  Sender: FDA-Public Use
  Company Number: None

PATIENT
  Age: 63 Year
  Sex: Female

DRUGS (11)
  1. PREGABALIN [Suspect]
     Dosage: 50 MG TID PO
     Route: 048
  2. PLAVIX [Concomitant]
  3. ASPIRIN [Concomitant]
  4. PROTONIX [Concomitant]
  5. TOPROL-XL [Concomitant]
  6. K-DUR 10 [Concomitant]
  7. ALDACTONE [Concomitant]
  8. CAPTOPRIL [Concomitant]
  9. LIPITOR [Concomitant]
  10. MINOCYCLINE HCL [Concomitant]
  11. LASIX [Concomitant]

REACTIONS (1)
  - UNEVALUABLE EVENT [None]
